FAERS Safety Report 12095252 (Version 3)
Quarter: 2016Q3

REPORT INFORMATION
  Report Type: Spontaneous
  Country: US (occurrence: US)
  Receive Date: 20160219
  Receipt Date: 20160701
  Transmission Date: 20161109
  Serious: Yes (Disabling, Other)
  Sender: FDA-Public Use
  Company Number: US-REGENERON PHARMACEUTICALS, INC.-2016-12357

PATIENT

DRUGS (3)
  1. EYLEA [Suspect]
     Active Substance: AFLIBERCEPT
     Dosage: UNK, EVERY 4 WEEKS, RIGHT EYE (OD)
     Route: 031
     Dates: start: 201601, end: 201601
  2. EYLEA [Suspect]
     Active Substance: AFLIBERCEPT
     Indication: NEOVASCULAR AGE-RELATED MACULAR DEGENERATION
     Dosage: UNK, EVERY 4 WEEKS
     Route: 031
     Dates: start: 20151117
  3. SYSTANE (HYPROMELLOSE 2910 (4000 MPA.S)) [Concomitant]
     Active Substance: HYPROMELLOSE 2910 (4000 MPA.S)
     Indication: DRY EYE

REACTIONS (2)
  - Blindness unilateral [Not Recovered/Not Resolved]
  - Macular fibrosis [Not Recovered/Not Resolved]

NARRATIVE: CASE EVENT DATE: 20151123
